FAERS Safety Report 5535290-5 (Version None)
Quarter: 2007Q4

REPORT INFORMATION
  Report Type: 
  Country: None (occurrence: None)
  Receive Date: 20071204
  Receipt Date: 20071116
  Transmission Date: 20080405
  Serious: Yes (Hospitalization)
  Sender: FDA-Public Use
  Company Number: 2007BM000181

PATIENT
  Age: 3 Month
  Sex: Female

DRUGS (3)
  1. PREDNISOLONE [Suspect]
     Indication: HAEMANGIOMA
     Dosage: 3.5 MG/KG;QD;PO
     Route: 048
  2. METHYLPREDNISOLONE [Suspect]
     Indication: HAEMANGIOMA
     Dosage: 3 MG/KG; IV
     Route: 042
  3. ORAPRED [Suspect]

REACTIONS (5)
  - BLOOD LACTATE DEHYDROGENASE INCREASED [None]
  - CD4 LYMPHOCYTES DECREASED [None]
  - EPENDYMOMA [None]
  - PNEUMOCYSTIS JIROVECI PNEUMONIA [None]
  - WHITE BLOOD CELL COUNT ABNORMAL [None]
